FAERS Safety Report 8380976-0 (Version None)
Quarter: 2012Q2

REPORT INFORMATION
  Report Type: 
  Country: None (occurrence: None)
  Receive Date: 20120523
  Receipt Date: 20120516
  Transmission Date: 20120825
  Serious: Yes (Hospitalization)
  Sender: FDA-Public Use
  Company Number: US-INCYTE CORPORATION-2012IN000820

PATIENT
  Sex: Male

DRUGS (10)
  1. ALLOPURINOL [Concomitant]
  2. SYNTHROID [Concomitant]
  3. FOLIC ACID [Concomitant]
  4. JAKAFI [Suspect]
     Indication: MYELOFIBROSIS
     Dosage: 10 MG, BID
     Route: 048
  5. AMLODIPINE BESYLATE [Concomitant]
  6. METHYLDOPA/ CARBIDOPA [Concomitant]
  7. ZOCOR [Concomitant]
  8. FLOMAX [Concomitant]
  9. METOPROLOL [Concomitant]
  10. SODIUM BICARBONATE [Concomitant]

REACTIONS (1)
  - RENAL FAILURE [None]
